FAERS Safety Report 11939771 (Version 1)
Quarter: 2016Q1

REPORT INFORMATION
  Report Type: Spontaneous
  Country: US (occurrence: US)
  Receive Date: 20160122
  Receipt Date: 20160122
  Transmission Date: 20160526
  Serious: No
  Sender: FDA-Public Use
  Company Number: US-PURDUE-USA-2015-0125996

PATIENT
  Sex: Male

DRUGS (1)
  1. DILAUDID [Suspect]
     Active Substance: HYDROMORPHONE HYDROCHLORIDE
     Indication: CANCER SURGERY
     Dosage: UNK MG, UNK
     Route: 065
     Dates: start: 2002

REACTIONS (2)
  - Drug hypersensitivity [Unknown]
  - Pain [Unknown]
